FAERS Safety Report 8058170-2 (Version None)
Quarter: 2012Q1

REPORT INFORMATION
  Report Type: 
  Country: None (occurrence: None)
  Receive Date: 20120120
  Receipt Date: 20120110
  Transmission Date: 20120608
  Serious: Yes (Hospitalization)
  Sender: FDA-Public Use
  Company Number: US-BAYER-2011-038856

PATIENT
  Age: 29 Year
  Sex: Female
  Weight: 100 kg

DRUGS (25)
  1. YAZ [Suspect]
     Indication: CONTRACEPTION
     Dosage: UNK
     Dates: start: 20030101, end: 20081101
  2. ALBUTEROL [Concomitant]
     Dosage: 2 DF, QID
     Route: 055
  3. DIPHENOXYLATE [Concomitant]
     Route: 048
  4. LORAZEPAM [Concomitant]
     Dosage: 1 MG, UNK
     Route: 048
  5. NAPROXEN [Concomitant]
     Dosage: 500 MG, UNK
     Route: 048
  6. AMBIEN [Concomitant]
     Dosage: 10 MG, QD
     Route: 048
  7. EFFEXOR XR [Concomitant]
     Dosage: 150 MG, UNK
     Route: 048
  8. LEVOTHYROXINE SODIUM [Concomitant]
     Dosage: 25 ?G, QD
     Route: 048
  9. LORTAB [Concomitant]
     Dosage: UNK UNK, QID
  10. NUBAIN [Concomitant]
     Dosage: 5 MG, UNK
  11. BENAZEPRIL HYDROCHLORIDE [Concomitant]
  12. PROPRANOLOL [Concomitant]
     Dosage: 80 MG, BID
     Route: 048
  13. RELPAX [Concomitant]
     Dosage: 40 MG, PRN
     Route: 048
  14. VERAPAMIL [Concomitant]
     Dosage: 360 MG, QD
     Route: 048
  15. ROBAXIN [Concomitant]
     Dosage: 750 MG, TID
     Route: 048
  16. ZOVIRAX [Concomitant]
     Dosage: 95 %, UNK
  17. CHLOR-MES [Concomitant]
  18. PRILOSEC [Concomitant]
     Dosage: 20 MG, QD
  19. PROMETHAZINE [Concomitant]
     Dosage: 25 MG, UNK
     Route: 048
  20. AZITHROMYCIN [Concomitant]
     Dosage: 250 MG, UNK
     Route: 048
  21. OXYCONTIN [Concomitant]
     Dosage: 20 MG, BID
     Route: 048
  22. XANAX [Concomitant]
     Dosage: 1 MG, UNK
     Route: 048
  23. ZYRTEC [Concomitant]
     Dosage: 10 MG, QD
     Route: 048
  24. LYRICA [Concomitant]
     Dosage: 75 MG, BID
     Route: 048
  25. NASACORT [Concomitant]

REACTIONS (7)
  - ANXIETY [None]
  - DEEP VEIN THROMBOSIS [None]
  - ANHEDONIA [None]
  - PAIN [None]
  - INJURY [None]
  - FEAR [None]
  - THROMBOPHLEBITIS [None]
